FAERS Safety Report 8250972-2 (Version None)
Quarter: 2012Q1

REPORT INFORMATION
  Report Type: 
  Country: None (occurrence: None)
  Receive Date: 20120319
  Receipt Date: 20090707
  Transmission Date: 20120608
  Serious: Yes (Other)
  Sender: FDA-Public Use
  Company Number: PHEH2009US06910

PATIENT
  Age: 71 Year
  Sex: Female
  Weight: 90 kg

DRUGS (15)
  1. LASIX [Concomitant]
  2. GEMFIBROZIL [Concomitant]
  3. GLUCOSAMINE /CHONDROITIN /MSM (CHONDROITIN, GLUCOSAMINE, METHYLSULFONY [Concomitant]
  4. OMEGA-3-ACID ETHYL ESTERS (LOVAZA) [Concomitant]
  5. ASPIRIN [Concomitant]
  6. TEKTURNA [Suspect]
     Indication: HYPERTENSION
     Dosage: 150 MG, QD, ORAL
     Route: 048
     Dates: start: 20090506, end: 20090623
  7. SYNTHROID [Concomitant]
  8. TOPROL-XL [Concomitant]
  9. OCUVITE LUTEIN /02380501/ (ASCORBIC ACID, CUPRIC OXIDE, TOCOPHERYL ACE [Concomitant]
  10. GARLIC (ALLIUM SATIVUM) [Concomitant]
  11. AZULFIDINE (SULFALAZINE) [Concomitant]
  12. OMEPRAZOLE [Concomitant]
  13. PERCOCET [Concomitant]
  14. JANUMET [Concomitant]
  15. CENTRUM SILVER (ASCORBIC ACID, CALCIUM, MINERALS NOS, RETINOL, TOOCPHE [Concomitant]

REACTIONS (3)
  - LIP SWELLING [None]
  - SWELLING FACE [None]
  - ANGIOEDEMA [None]
